FAERS Safety Report 25245851 (Version 3)
Quarter: 2025Q3

REPORT INFORMATION
  Report Type: Spontaneous
  Country: EU (occurrence: EU)
  Receive Date: 20250428
  Receipt Date: 20250809
  Transmission Date: 20251021
  Serious: Yes (Hospitalization)
  Sender: ALEXION PHARMACEUTICALS
  Company Number: EU-002147023-NVSC2025DE061237

PATIENT
  Age: 69 Year
  Sex: Female

DRUGS (8)
  1. FASLODEX [Suspect]
     Active Substance: FULVESTRANT
     Indication: Breast cancer
     Dates: start: 20221020, end: 20240603
  2. FASLODEX [Suspect]
     Active Substance: FULVESTRANT
  3. LETROZOLE [Suspect]
     Active Substance: LETROZOLE
     Indication: Breast cancer
     Dosage: 2.5 MILLIGRAM, QD
     Dates: start: 20210825, end: 20220825
  4. PALBOCICLIB [Suspect]
     Active Substance: PALBOCICLIB
     Indication: Breast cancer
     Dosage: 125 MG, QD (FROM DAY 1TO DAY EVERY 28 DAY CYCLE ORAL)
     Dates: start: 20210825, end: 20221208
  5. PALBOCICLIB [Suspect]
     Active Substance: PALBOCICLIB
     Dosage: 100 MG, QD (FROM DAY 1TO DAY EVERY 28 DAY CYCLE ORAL)
     Dates: start: 20211124, end: 20230827
  6. PALBOCICLIB [Suspect]
     Active Substance: PALBOCICLIB
     Dosage: 75 MG, QD (FROM DAY 1TO DAY EVERY 28 DAY CYCLE ORAL)
     Dates: start: 20230918, end: 20240616
  7. RAMIPRIL [Concomitant]
     Active Substance: RAMIPRIL
     Indication: Hypertension
     Route: 065
  8. RAMIPRIL [Concomitant]
     Active Substance: RAMIPRIL
     Route: 065

REACTIONS (1)
  - Hepatic encephalopathy [Not Recovered/Not Resolved]

NARRATIVE: CASE EVENT DATE: 20250114
